FAERS Safety Report 7872691-4 (Version None)
Quarter: 2011Q4

REPORT INFORMATION
  Report Type: 
  Country: None (occurrence: None)
  Receive Date: 20111030
  Receipt Date: 20110502
  Transmission Date: 20120403
  Serious: No
  Sender: FDA-Public Use
  Company Number: US-AMGEN-USASP2011022579

PATIENT
  Age: 49 Year
  Sex: Female

DRUGS (1)
  1. ENBREL [Suspect]
     Indication: RHEUMATOID ARTHRITIS
     Dates: start: 20030101

REACTIONS (6)
  - STRESS [None]
  - INJECTION SITE HAEMATOMA [None]
  - IMPAIRED HEALING [None]
  - THERAPEUTIC RESPONSE DECREASED [None]
  - PAIN [None]
  - FATIGUE [None]
